FAERS Safety Report 4312797-X (Version None)
Quarter: 2004Q1

REPORT INFORMATION
  Report Type: 
  Country: None (occurrence: None)
  Receive Date: 20040304
  Receipt Date: 20040219
  Transmission Date: 20041129
  Serious: Yes (Hospitalization)
  Sender: FDA-Public Use
  Company Number: UK058115

PATIENT
  Age: 62 Year
  Sex: Male

DRUGS (4)
  1. KINERET [Suspect]
     Indication: RHEUMATOID ARTHRITIS
     Dosage: 100 MG, DAILY, SC
     Route: 058
     Dates: start: 20030701, end: 20030901
  2. REMICADE [Suspect]
     Dosage: 200 MG, ONCE A MONTH, IV
     Route: 042
     Dates: start: 20020311, end: 20030317
  3. METHOTREXATE [Suspect]
     Dosage: 10 MG, DIALY, IM
     Route: 030
     Dates: start: 19950101, end: 20030916
  4. METHYLPREDNISOLONE [Concomitant]

REACTIONS (3)
  - ARTHRITIS BACTERIAL [None]
  - DISSEMINATED TUBERCULOSIS [None]
  - DRUG INEFFECTIVE [None]
